FAERS Safety Report 4743643-8 (Version None)
Quarter: 2005Q3

REPORT INFORMATION
  Report Type: 
  Country: None (occurrence: None)
  Receive Date: 20050809
  Receipt Date: 20050520
  Transmission Date: 20060218
  Serious: Yes (Other)
  Sender: FDA-Public Use
  Company Number: ENTC2005-0142

PATIENT
  Age: 57 Year
  Sex: Female

DRUGS (13)
  1. STALEVO 100 [Suspect]
     Indication: PARKINSON'S DISEASE
     Dosage: SEE IMAGE
     Route: 048
     Dates: start: 20040505, end: 20050510
  2. STALEVO 100 [Suspect]
     Indication: PARKINSON'S DISEASE
     Dosage: SEE IMAGE
     Route: 048
     Dates: start: 20050704
  3. COMTESS (ENTACAPONE) [Suspect]
     Dosage: 1200 MG, 200 MG, 6 IN 1D)
  4. CABASER [Concomitant]
  5. DITROPAN [Concomitant]
  6. CAPTOL [Concomitant]
  7. ELTROXIN [Concomitant]
  8. MAGNYL [Concomitant]
  9. SINEMET [Concomitant]
  10. MANDOLGIN [Concomitant]
  11. PINEX [Concomitant]
  12. ZOFRAN [Concomitant]
  13. PREDNISOLONE [Concomitant]

REACTIONS (4)
  - CONDITION AGGRAVATED [None]
  - CROHN'S DISEASE [None]
  - DIARRHOEA [None]
  - PARKINSON'S DISEASE [None]
